FAERS Safety Report 15246700 (Version 8)
Quarter: 2019Q2

REPORT INFORMATION
  Report Type: Report from Study
  Country: US (occurrence: US)
  Receive Date: 20180806
  Receipt Date: 20190626
  Transmission Date: 20190711
  Serious: Yes (Hospitalization)
  Sender: FDA-Public Use
  Company Number: US-TAKEDA-2018TUS007807

PATIENT
  Sex: Male

DRUGS (1)
  1. PONATINIB [Suspect]
     Active Substance: PONATINIB
     Indication: ACUTE LYMPHOCYTIC LEUKAEMIA
     Dosage: 45 MILLIGRAM, QD
     Route: 048
     Dates: start: 20180228

REACTIONS (16)
  - Joint swelling [Unknown]
  - Skin exfoliation [Recovering/Resolving]
  - Rash erythematous [Unknown]
  - Pneumonia [Unknown]
  - Skin papilloma [Unknown]
  - Oxygen saturation decreased [Unknown]
  - Dry skin [Recovering/Resolving]
  - Tracheostomy malfunction [Unknown]
  - Blood immunoglobulin G decreased [Unknown]
  - Peripheral swelling [Unknown]
  - Musculoskeletal chest pain [Unknown]
  - Dysphagia [Unknown]
  - Pleurisy [Unknown]
  - Decreased immune responsiveness [Unknown]
  - Cellulitis [Unknown]
  - Blood pressure increased [Unknown]
